FAERS Safety Report 9240225 (Version 1)
Quarter: 2013Q2

REPORT INFORMATION
  Report Type: Spontaneous
  Country: US (occurrence: US)
  Receive Date: 20130418
  Receipt Date: 20130418
  Transmission Date: 20140414
  Serious: Yes (Other)
  Sender: FDA-Public Use
  Company Number: CHPA2013US006388

PATIENT
  Age: 61 Year
  Sex: Female

DRUGS (2)
  1. CONTROL PLP [Suspect]
     Indication: SMOKING CESSATION THERAPY
     Dosage: 21 MG, QD
     Route: 062
     Dates: start: 20130122
  2. KLOR-CON [Concomitant]
     Dosage: 20 MG, QD
     Dates: start: 201303

REACTIONS (7)
  - Ulcer [Not Recovered/Not Resolved]
  - Helicobacter infection [Not Recovered/Not Resolved]
  - Cataract [Recovering/Resolving]
  - Polyp [Recovered/Resolved]
  - Hernia [Not Recovered/Not Resolved]
  - Choking [Not Recovered/Not Resolved]
  - Dysphagia [Not Recovered/Not Resolved]
